FAERS Safety Report 21215288 (Version 16)
Quarter: 2025Q4

REPORT INFORMATION
  Report Type: Spontaneous
  Country: GB (occurrence: GB)
  Receive Date: 20220816
  Receipt Date: 20251209
  Transmission Date: 20260117
  Serious: Yes (Other)
  Sender: ALEXION PHARMACEUTICALS
  Company Number: 2022A283133

PATIENT
  Age: 32 Year
  Sex: Female

DRUGS (52)
  1. QUETIAPINE FUMARATE [Suspect]
     Active Substance: QUETIAPINE FUMARATE
     Indication: Product used for unknown indication
     Dosage: UNK; FORM OF ADMIN:TABLETS;
  2. QUETIAPINE FUMARATE [Suspect]
     Active Substance: QUETIAPINE FUMARATE
     Dosage: UNK, UNK (EVERY); PHARMA. DOSE FORM OF ADMIN TEXT:TABLET;
     Route: 065
  3. QUETIAPINE FUMARATE [Suspect]
     Active Substance: QUETIAPINE FUMARATE
     Dosage: UNK, UNK (EVERY); PHARMA. DOSE FORM OF ADMIN TEXT:TABLET;
     Route: 065
  4. QUETIAPINE FUMARATE [Suspect]
     Active Substance: QUETIAPINE FUMARATE
     Dosage: UNK; PHARMA. DOSE FORM OF ADMIN TEXT:TABLET;
  5. AMISULPRIDE [Suspect]
     Active Substance: AMISULPRIDE
     Indication: Hallucination, auditory
     Dosage: UNKNOWN
  6. ARIPIPRAZOLE [Suspect]
     Active Substance: ARIPIPRAZOLE
     Indication: Hallucination, auditory
     Dosage: UNK
     Route: 065
  7. OLANZAPINE [Suspect]
     Active Substance: OLANZAPINE
     Indication: Hallucination, auditory
  8. OLANZAPINE [Suspect]
     Active Substance: OLANZAPINE
     Indication: Drug ineffective
     Dosage: UNK; ROUTE OF ADMIN:ORAL;
  9. OLANZAPINE [Suspect]
     Active Substance: OLANZAPINE
     Indication: Schizophrenia
     Dosage: UNK; ROUTE OF ADMIN:ORAL;
  10. OLANZAPINE [Suspect]
     Active Substance: OLANZAPINE
     Indication: Hallucination, auditory
     Dosage: UNK; ROUTE OF ADMIN:ORAL;
  11. OLANZAPINE [Suspect]
     Active Substance: OLANZAPINE
     Indication: Schizophrenia
     Dosage: UNK; ROUTE OF ADMIN:ORAL;
  12. OLANZAPINE [Suspect]
     Active Substance: OLANZAPINE
     Indication: Hallucination, auditory
     Dosage: UNK; ROUTE OF ADMIN:ORAL;
  13. RISPERIDONE [Suspect]
     Active Substance: RISPERIDONE
     Indication: Schizophrenia
     Dosage: UNK
     Route: 065
     Dates: start: 2006, end: 20171205
  14. RISPERIDONE [Suspect]
     Active Substance: RISPERIDONE
     Indication: Hallucination, auditory
     Dosage: UNK
     Route: 065
  15. RISPERIDONE [Suspect]
     Active Substance: RISPERIDONE
     Indication: Hallucination, auditory
     Dosage: UNK
     Route: 065
  16. RISPERIDONE [Suspect]
     Active Substance: RISPERIDONE
     Indication: Hallucination, auditory
     Dosage: UNK
     Route: 065
  17. RISPERIDONE [Suspect]
     Active Substance: RISPERIDONE
     Indication: Schizophrenia
  18. RISPERIDONE [Suspect]
     Active Substance: RISPERIDONE
     Indication: Drug ineffective
  19. ABILIFY [Suspect]
     Active Substance: ARIPIPRAZOLE
     Indication: Hallucination, auditory
     Dosage: UNK
     Route: 065
  20. ABILIFY [Suspect]
     Active Substance: ARIPIPRAZOLE
     Indication: Product used for unknown indication
  21. CLOZARIL [Suspect]
     Active Substance: CLOZAPINE
     Indication: Schizophrenia
     Dosage: ROUTE OF ADMIN:ORAL; PHARMA. DOSE FORM OF ADMIN TEXT:TABLET`;
     Dates: start: 20050215, end: 20071205
  22. CLOZARIL [Suspect]
     Active Substance: CLOZAPINE
     Indication: Hallucination, auditory
     Dosage: UNK; PHARMA. DOSE FORM OF ADMIN TEXT:TABLET;
     Dates: start: 20150215, end: 20171205
  23. CLOZARIL [Suspect]
     Active Substance: CLOZAPINE
     Indication: Schizoaffective disorder
     Dosage: PARENT ROUTE OF ADMIN:ORAL; PHARMA. DOSE FORM OF ADMIN TEXT:TABLET;
     Dates: start: 20180205, end: 20191205
  24. CLOZARIL [Suspect]
     Active Substance: CLOZAPINE
     Dates: start: 20181205, end: 20191205
  25. CLOZARIL [Suspect]
     Active Substance: CLOZAPINE
     Dosage: UNK; ROUTE OF ADMIN:ORAL; PHARMA. DOSE FORM OF ADMIN TEXT:TABLET;
  26. CLOZARIL [Suspect]
     Active Substance: CLOZAPINE
     Dosage: PHARMA. DOSE FORM OF ADMIN TEXT:TABLET;
  27. CLOZARIL [Suspect]
     Active Substance: CLOZAPINE
     Dosage: PHARMA. DOSE FORM OF ADMIN TEXT:TABLET;
  28. CLOZARIL [Suspect]
     Active Substance: CLOZAPINE
     Dosage: PARENT ROUTE OF ADMIN:ORAL; PHARMA. DOSE FORM OF ADMIN TEXT:TABLET;
  29. CLOZARIL [Suspect]
     Active Substance: CLOZAPINE
     Dosage: ROUTE OF ADMIN:ORAL; PHARMA. DOSE FORM OF ADMIN TEXT:TABLET`;
  30. CLOZARIL [Suspect]
     Active Substance: CLOZAPINE
     Dosage: PARENT ROUTE OF ADMIN:ORAL; PHARMA. DOSE FORM OF ADMIN TEXT:TABLET;
  31. CLOZARIL [Suspect]
     Active Substance: CLOZAPINE
     Dosage: UNK, DAILY; ROUTE OF ADMIN:ORAL; PHARMA. DOSE FORM OF ADMIN TEXT:TABLET;
  32. CLOZARIL [Suspect]
     Active Substance: CLOZAPINE
     Dosage: UNK; ROUTE OF ADMIN:ORAL; PHARMA. DOSE FORM OF ADMIN TEXT:TABLET;
  33. CLOZARIL [Suspect]
     Active Substance: CLOZAPINE
     Dosage: UNK; ROUTE OF ADMIN:ORAL; PHARMA. DOSE FORM OF ADMIN TEXT:TABLET;
  34. CLOZARIL [Suspect]
     Active Substance: CLOZAPINE
     Dosage: UNK, UNK (EVERY); ROUTE OF ADMIN:ORAL; PHARMA. DOSE FORM OF ADMIN TEXT:TABLET;
  35. HALDOL [Suspect]
     Active Substance: HALOPERIDOL
     Indication: Hallucination, auditory
     Dosage: UNK
     Route: 065
     Dates: start: 2006, end: 20171215
  36. HALDOL [Suspect]
     Active Substance: HALOPERIDOL
     Indication: Schizophrenia
     Dosage: UNK
     Route: 065
  37. HALDOL [Suspect]
     Active Substance: HALOPERIDOL
     Indication: Drug ineffective
     Dosage: UNK
  38. HALDOL [Suspect]
     Active Substance: HALOPERIDOL
     Indication: Hallucination, auditory
  39. HALOPERIDOL [Suspect]
     Active Substance: HALOPERIDOL
     Indication: Schizophrenia
     Route: 065
     Dates: start: 2006, end: 20171205
  40. HALOPERIDOL [Suspect]
     Active Substance: HALOPERIDOL
     Indication: Hallucination, auditory
     Dosage: UNK
     Route: 065
  41. HALOPERIDOL [Suspect]
     Active Substance: HALOPERIDOL
     Indication: Hallucination, auditory
     Dosage: UNK
  42. HALOPERIDOL [Suspect]
     Active Substance: HALOPERIDOL
     Indication: Schizophrenia
     Dosage: UNK
  43. HALOPERIDOL [Suspect]
     Active Substance: HALOPERIDOL
     Dosage: UNK
     Route: 065
  44. RISPERDAL [Suspect]
     Active Substance: RISPERIDONE
     Indication: Schizophrenia
     Route: 065
     Dates: start: 2006, end: 20171205
  45. RISPERDAL [Suspect]
     Active Substance: RISPERIDONE
     Indication: Hallucination, auditory
     Route: 065
  46. RISPERDAL [Suspect]
     Active Substance: RISPERIDONE
     Indication: Product used for unknown indication
     Dosage: UNK
  47. RISPERDAL [Suspect]
     Active Substance: RISPERIDONE
     Indication: Drug ineffective
     Dosage: UNK
  48. RISPERDAL [Suspect]
     Active Substance: RISPERIDONE
     Indication: Hallucination, auditory
     Dosage: UNK
  49. ZUCLOPENTHIXOL [Suspect]
     Active Substance: ZUCLOPENTHIXOL
     Indication: Hallucination, auditory
     Dosage: PHARMA. DOSE FORM OF ADMIN TEXT:FILM-COATED TABLET;
     Route: 065
     Dates: start: 2006, end: 20171205
  50. ZUCLOPENTHIXOL [Suspect]
     Active Substance: ZUCLOPENTHIXOL
     Indication: Schizophrenia
     Dosage: UNK; PHARMA. DOSE FORM OF ADMIN TEXT:FILM-COATED TABLET;
  51. ZUCLOPENTHIXOL [Suspect]
     Active Substance: ZUCLOPENTHIXOL
     Indication: Hallucination, auditory
     Dosage: UNK; PHARMA. DOSE FORM OF ADMIN TEXT:FILM-COATED TABLET;
  52. ZUCLOPENTHIXOL [Suspect]
     Active Substance: ZUCLOPENTHIXOL
     Indication: Drug ineffective

REACTIONS (17)
  - Eosinophil count decreased [Recovered/Resolved]
  - Leukopenia [Recovered/Resolved]
  - Malaise [Not Recovered/Not Resolved]
  - Neutropenia [Recovered/Resolved]
  - Refusal of examination [Unknown]
  - Schizophrenia [Not Recovered/Not Resolved]
  - Ocular hyperaemia [Unknown]
  - Eating disorder [Not Recovered/Not Resolved]
  - Mental impairment [Not Recovered/Not Resolved]
  - Food poisoning [Unknown]
  - Gastroenteritis [Unknown]
  - Suicidal ideation [Unknown]
  - Medication error [Unknown]
  - Intentional product misuse [Unknown]
  - Product use in unapproved indication [Unknown]
  - Drug ineffective [Unknown]
  - Drug abuse [Unknown]

NARRATIVE: CASE EVENT DATE: 20170901
